FAERS Safety Report 10508545 (Version 3)
Quarter: 2020Q4

REPORT INFORMATION
  Report Type: Report from Study
  Country: US (occurrence: US)
  Receive Date: 20141009
  Receipt Date: 20201015
  Transmission Date: 20210113
  Serious: Yes (Other)
  Sender: FDA-Public Use
  Company Number: US-SA-2013SA104905

PATIENT
  Age: 55 Year
  Sex: Female

DRUGS (2)
  1. MODAFINIL. [Concomitant]
     Active Substance: MODAFINIL
     Indication: FATIGUE
  2. TERIFLUNOMIDE. [Suspect]
     Active Substance: TERIFLUNOMIDE
     Indication: MULTIPLE SCLEROSIS
     Dosage: 14 MG,QD
     Route: 048
     Dates: start: 20130916

REACTIONS (10)
  - Joint injury [Not Recovered/Not Resolved]
  - Multiple sclerosis relapse [Unknown]
  - Alopecia [Unknown]
  - Arrhythmia [Unknown]
  - Dysphagia [Unknown]
  - Gastroenteritis viral [Recovered/Resolved]
  - Unevaluable event [Unknown]
  - Facial bones fracture [Recovered/Resolved]
  - Fall [Unknown]
  - Dysphonia [Unknown]

NARRATIVE: CASE EVENT DATE: 201405
